FAERS Safety Report 18869363 (Version 1)
Quarter: 2021Q1

REPORT INFORMATION
  Report Type: Report from Study
  Country: GB (occurrence: GB)
  Receive Date: 20210210
  Receipt Date: 20210210
  Transmission Date: 20210420
  Serious: Yes (Hospitalization, Other)
  Sender: FDA-Public Use
  Company Number: GB-TAKEDA-2020TUS059242

PATIENT
  Age: 86 Year
  Sex: Male

DRUGS (1)
  1. IXAZOMIB [Suspect]
     Active Substance: IXAZOMIB
     Indication: PLASMA CELL MYELOMA
     Dosage: 3 MILLIGRAM
     Route: 048
     Dates: start: 20180823, end: 20201224

REACTIONS (15)
  - Acute kidney injury [Recovered/Resolved]
  - Cognitive disorder [Recovering/Resolving]
  - Erythema [Unknown]
  - Abdominal distension [Recovered/Resolved]
  - SARS-CoV-2 test positive [Not Recovered/Not Resolved]
  - Delirium [Recovering/Resolving]
  - Back pain [Recovered/Resolved]
  - Plasma cell myeloma [Unknown]
  - Anaemia [Recovering/Resolving]
  - Amnesia [Recovering/Resolving]
  - Skin infection [Unknown]
  - Neutropenia [Not Recovered/Not Resolved]
  - Diarrhoea [Unknown]
  - Hypokalaemia [Recovered/Resolved]
  - Thrombocytopenia [Recovering/Resolving]

NARRATIVE: CASE EVENT DATE: 20201227
